FAERS Safety Report 5763617-8 (Version None)
Quarter: 2008Q2

REPORT INFORMATION
  Report Type: 
  Country: None (occurrence: None)
  Receive Date: 20080610
  Receipt Date: 20080602
  Transmission Date: 20081010
  Serious: Yes (Other)
  Sender: FDA-Public Use
  Company Number: PHHY2008JP09929

PATIENT
  Age: 55 Year
  Sex: Female

DRUGS (8)
  1. CAFERGOT [Suspect]
     Indication: MIGRAINE
     Route: 048
  2. BETAHISTINE MESILATE [Concomitant]
  3. CERCINE [Concomitant]
  4. NOVAMIN [Concomitant]
  5. MEQUITAZINE [Concomitant]
  6. TRYPTANOL                               /AUS/ [Concomitant]
  7. NEOMALLERMIN TR [Concomitant]
  8. EPINASTINE HYDROCHLORIDE [Suspect]

REACTIONS (1)
  - CARDIAC FAILURE [None]
